FAERS Safety Report 6601140-9 (Version None)
Quarter: 2010Q1

REPORT INFORMATION
  Report Type: 
  Country: None (occurrence: None)
  Receive Date: 20100225
  Receipt Date: 20100217
  Transmission Date: 20100710
  Serious: Yes (Other)
  Sender: FDA-Public Use
  Company Number: US-JNJFOC-20100107468

PATIENT
  Sex: Male
  Weight: 99.79 kg

DRUGS (1)
  1. REMICADE [Suspect]
     Indication: CROHN'S DISEASE
     Dosage: ON  INFLIXIMAB FOR A COUPLE OF YEARS
     Route: 042

REACTIONS (3)
  - HYPOAESTHESIA [None]
  - INFUSION RELATED REACTION [None]
  - VISUAL IMPAIRMENT [None]
